FAERS Safety Report 16901970 (Version 3)
Quarter: 2020Q1

REPORT INFORMATION
  Report Type: Report from Study
  Country: IT (occurrence: IT)
  Receive Date: 20191010
  Receipt Date: 20200115
  Transmission Date: 20200409
  Serious: Yes (Other)
  Sender: FDA-Public Use
  Company Number: IT-TEVA-2019-IT-1118980

PATIENT
  Age: 54 Year
  Sex: Female

DRUGS (3)
  1. LINEZOLID. [Suspect]
     Active Substance: LINEZOLID
     Indication: TUBERCULOSIS
     Dosage: 600 MG
     Route: 048
     Dates: start: 20181224, end: 20190702
  2. MOXIFLOXACIN HYDROCHLORIDE. [Concomitant]
     Active Substance: MOXIFLOXACIN HYDROCHLORIDE
     Indication: ANTIBIOTIC THERAPY
  3. ETAPIAM ETAMBUTOLO [Concomitant]
     Indication: TUBERCULOSIS
     Route: 048

REACTIONS (4)
  - Thrombocytopenia [Recovering/Resolving]
  - Neurotoxicity [Recovering/Resolving]
  - Leukopenia [Recovering/Resolving]
  - Paraesthesia [Recovering/Resolving]

NARRATIVE: CASE EVENT DATE: 20190701
